FAERS Safety Report 7771336-1 (Version None)
Quarter: 2011Q3

REPORT INFORMATION
  Report Type: 
  Country: None (occurrence: None)
  Receive Date: 20110922
  Receipt Date: 20110912
  Transmission Date: 20111222
  Serious: Yes (Hospitalization)
  Sender: FDA-Public Use
  Company Number: IE-JNJFOC-20110411108

PATIENT
  Age: 45 Year
  Sex: Male

DRUGS (4)
  1. STELARA [Suspect]
     Indication: PSORIASIS
     Route: 058
     Dates: start: 20100701
  2. STELARA [Suspect]
     Route: 058
     Dates: start: 20100801
  3. ISTIN [Concomitant]
     Indication: BLOOD PRESSURE INCREASED
     Route: 065
  4. STELARA [Suspect]
     Route: 058

REACTIONS (3)
  - BRADYCARDIA [None]
  - PRESYNCOPE [None]
  - HEADACHE [None]
